FAERS Safety Report 10990869 (Version 2)
Quarter: 2015Q2

REPORT INFORMATION
  Report Type: Spontaneous
  Country: US (occurrence: US)
  Receive Date: 20150406
  Receipt Date: 20150406
  Transmission Date: 20150821
  Serious: Yes (Hospitalization)
  Sender: FDA-Public Use
  Company Number: US-ACTAVIS-2015-06815

PATIENT
  Sex: Female
  Weight: 80 kg

DRUGS (13)
  1. IODOQUINOL [Concomitant]
     Active Substance: IODOQUINOL
     Indication: PRODUCT USED FOR UNKNOWN INDICATION
     Route: 065
  2. MECLIZINE HYDROCHLORIDE (WATSON LABORATORIES) [Suspect]
     Active Substance: MECLIZINE HYDROCHLORIDE
     Indication: NAUSEA
     Dosage: 25 MG, UNK
     Dates: start: 2013
  3. TYLENOL EXTRA STRENGTH [Concomitant]
     Active Substance: ACETAMINOPHEN
     Indication: PRODUCT USED FOR UNKNOWN INDICATION
     Route: 065
  4. B12                                /00056201/ [Concomitant]
     Indication: PRODUCT USED FOR UNKNOWN INDICATION
     Route: 065
  5. ANUSOL HC [Concomitant]
     Active Substance: HYDROCORTISONE
     Indication: PRODUCT USED FOR UNKNOWN INDICATION
     Route: 065
  6. VERAPAMIL [Concomitant]
     Active Substance: VERAPAMIL HYDROCHLORIDE
     Indication: PRODUCT USED FOR UNKNOWN INDICATION
     Route: 065
  7. PROCTOFOAM HC [Concomitant]
     Active Substance: HYDROCORTISONE ACETATE\PRAMOXINE HYDROCHLORIDE
     Indication: PRODUCT USED FOR UNKNOWN INDICATION
     Route: 065
  8. CARAFATE [Suspect]
     Active Substance: SUCRALFATE
     Indication: PRODUCT USED FOR UNKNOWN INDICATION
     Dosage: 1 G, Q6H
     Route: 048
     Dates: end: 2014
  9. MIDRIN                             /00450801/ [Concomitant]
     Active Substance: ACETAMINOPHEN\DICHLORALPHENAZONE\ISOMETHEPTENE HYDROCHLORIDE
     Indication: PRODUCT USED FOR UNKNOWN INDICATION
     Route: 065
  10. TRIAMCINOLONE [Concomitant]
     Active Substance: TRIAMCINOLONE
     Indication: PRODUCT USED FOR UNKNOWN INDICATION
     Route: 065
  11. TEMOVATE [Concomitant]
     Active Substance: CLOBETASOL PROPIONATE
     Indication: PRODUCT USED FOR UNKNOWN INDICATION
     Route: 065
  12. XANAX [Concomitant]
     Active Substance: ALPRAZOLAM
     Indication: PRODUCT USED FOR UNKNOWN INDICATION
     Route: 065
  13. PREDNISONE. [Concomitant]
     Active Substance: PREDNISONE
     Indication: PRODUCT USED FOR UNKNOWN INDICATION
     Route: 065

REACTIONS (32)
  - Abdominal pain upper [Unknown]
  - Hyperhidrosis [Unknown]
  - Influenza [Unknown]
  - Fatigue [Unknown]
  - Syncope [Unknown]
  - Lactose intolerance [Unknown]
  - Product substitution issue [Unknown]
  - Abdominal discomfort [Unknown]
  - Gastric ulcer [Unknown]
  - Nausea [Unknown]
  - Dehydration [Unknown]
  - Hypersensitivity [Unknown]
  - Stomatitis [Unknown]
  - Eyelid oedema [Unknown]
  - Somnolence [Unknown]
  - Lacrimation increased [Unknown]
  - Blood aluminium increased [Unknown]
  - Tension [Unknown]
  - Weight decreased [Unknown]
  - Swollen tongue [Unknown]
  - Rhinorrhoea [Unknown]
  - Mydriasis [Unknown]
  - Circulatory collapse [Unknown]
  - Migraine [Unknown]
  - Cold sweat [Unknown]
  - Pupil fixed [Unknown]
  - Malaise [Unknown]
  - Coeliac disease [Unknown]
  - Decreased activity [Unknown]
  - Nasopharyngitis [Unknown]
  - Dizziness [Unknown]
  - Cyst [Unknown]

NARRATIVE: CASE EVENT DATE: 2013
